FAERS Safety Report 9880924 (Version 1)
Quarter: 2014Q1

REPORT INFORMATION
  Report Type: Spontaneous
  Country: US (occurrence: None)
  Receive Date: 20140206
  Receipt Date: 20140206
  Transmission Date: 20141002
  Serious: Yes (Other)
  Sender: FDA-Public Use
  Company Number: None

PATIENT
  Age: 85 Year
  Sex: Female
  Weight: 43.55 kg

DRUGS (7)
  1. LAMOTRIGINE [Suspect]
     Indication: CONVULSION PROPHYLAXIS
     Dates: start: 20131015, end: 20140204
  2. ASPIRIN [Concomitant]
  3. FUROSEMIDE [Concomitant]
  4. LEVOTHYROXINE [Concomitant]
  5. DIOVAN [Concomitant]
  6. SIMIVISTATIN [Concomitant]
  7. PROTONIX [Concomitant]

REACTIONS (4)
  - Granulocyte count decreased [None]
  - Neutropenia [None]
  - Non-Hodgkin^s lymphoma [None]
  - Product substitution issue [None]
